FAERS Safety Report 6434291-2 (Version None)
Quarter: 2009Q4

REPORT INFORMATION
  Report Type: 
  Country: None (occurrence: None)
  Receive Date: 20091110
  Receipt Date: 20091104
  Transmission Date: 20100525
  Serious: Yes (Death, Hospitalization)
  Sender: FDA-Public Use
  Company Number: US-CELGENEUS-163-50794-09090641

PATIENT
  Sex: Male
  Weight: 74.5 kg

DRUGS (9)
  1. VIDAZA [Suspect]
     Route: 051
     Dates: start: 20090727, end: 20090730
  2. VIDAZA [Suspect]
     Route: 051
     Dates: start: 20090109, end: 20090113
  3. ACTOPLUS MET [Concomitant]
     Dosage: 15-500MG
     Route: 048
     Dates: start: 20071107
  4. LISINOPRIL [Concomitant]
     Indication: HYPERTENSION
     Route: 048
     Dates: start: 20081218
  5. SIMVASTATIN [Concomitant]
     Route: 048
     Dates: start: 20071107
  6. PERCOCET [Concomitant]
     Indication: PAIN
     Dosage: 5-325MG
     Route: 048
     Dates: start: 20090820
  7. CYCLOSPORINE [Concomitant]
     Indication: DRUG USE FOR UNKNOWN INDICATION
     Route: 065
     Dates: start: 20090801
  8. FLUCONAZOLE [Concomitant]
     Indication: DRUG USE FOR UNKNOWN INDICATION
     Route: 065
     Dates: start: 20090801
  9. VALTREX [Concomitant]
     Indication: DRUG USE FOR UNKNOWN INDICATION
     Route: 065
     Dates: start: 20090801

REACTIONS (5)
  - BONE MARROW FAILURE [None]
  - PANCYTOPENIA [None]
  - PYODERMA GANGRENOSUM [None]
  - PYREXIA [None]
  - SEPSIS [None]
